FAERS Safety Report 6022285-0 (Version None)
Quarter: 2008Q4

REPORT INFORMATION
  Report Type: 
  Country: None (occurrence: None)
  Receive Date: 20081230
  Receipt Date: 20081218
  Transmission Date: 20090506
  Serious: Yes (Other)
  Sender: FDA-Public Use
  Company Number: US-JNJFOC-20081205189

PATIENT
  Sex: Male
  Weight: 67.13 kg

DRUGS (5)
  1. RISPERDAL [Suspect]
     Indication: AUTISM
     Route: 048
  2. RISPERDAL [Suspect]
     Indication: IRRITABILITY
     Route: 048
  3. PROZAC [Concomitant]
     Indication: DEPRESSION
     Route: 048
  4. NEXIUM [Concomitant]
     Indication: GASTRIC DISORDER
     Route: 048
  5. KLONOPIN [Concomitant]
     Indication: FEELING OF RELAXATION
     Route: 048

REACTIONS (2)
  - INCORRECT DOSE ADMINISTERED [None]
  - SELF INJURIOUS BEHAVIOUR [None]
